FAERS Safety Report 9071242 (Version 1)
Quarter: 2013Q1

REPORT INFORMATION
  Report Type: Spontaneous
  Country: US (occurrence: US)
  Receive Date: 20130206
  Receipt Date: 20130206
  Transmission Date: 20140127
  Serious: No
  Sender: FDA-Public Use
  Company Number: US-ALLERGAN-1209765US

PATIENT
  Age: 64 Year
  Sex: Female

DRUGS (19)
  1. RESTASIS? [Suspect]
     Indication: DRY EYE
     Dosage: 2 GTT, BID
     Route: 047
     Dates: start: 20120613
  2. EVISTA [Suspect]
     Indication: OSTEOARTHRITIS
     Dosage: 60 MG, QD
     Route: 048
     Dates: start: 20120612
  3. RANITIDINE [Concomitant]
     Indication: PRODUCT USED FOR UNKNOWN INDICATION
     Dosage: UNK UNK, QD
  4. WELLBUTRIN /00700501/ [Concomitant]
     Indication: DEPRESSION
     Dosage: UNK UNK, BID
  5. CLONAZEPAM [Concomitant]
     Indication: ANXIETY
     Dosage: .5 MG, BID
     Route: 048
  6. LEVOTHYROXINE [Concomitant]
     Indication: PRODUCT USED FOR UNKNOWN INDICATION
     Dosage: 50 ?G, QOD
  7. LEVOTHYROXINE [Concomitant]
     Dosage: 75 ?G, QOD
  8. PRAVASTIN SODIUM [Concomitant]
     Indication: BLOOD CHOLESTEROL INCREASED
     Dosage: UNK
  9. METFORMIN [Concomitant]
     Indication: DIABETES MELLITUS
     Dosage: 1 N/A, QPM
  10. SINGULAIR                          /01362601/ [Concomitant]
     Indication: ASTHMA
     Dosage: 1 N/A, UNK
  11. ASA [Concomitant]
     Indication: PRODUCT USED FOR UNKNOWN INDICATION
     Dosage: 81 ?G, QD
  12. VITAMIN B12                        /00056201/ [Concomitant]
     Indication: PRODUCT USED FOR UNKNOWN INDICATION
     Dosage: UNK UNK, QD
  13. CITRACAL [Concomitant]
     Indication: PRODUCT USED FOR UNKNOWN INDICATION
     Dosage: UNK UNK, QD
  14. VITAMIN D /00107901/ [Concomitant]
     Indication: PRODUCT USED FOR UNKNOWN INDICATION
     Dosage: UNK
  15. SYSTANE [Concomitant]
     Indication: DRY EYE
     Dosage: UNK
  16. QVAR [Concomitant]
     Indication: ASTHMA
     Dosage: 2 N/A, UNK
     Route: 055
  17. VENTOLIN                           /00139501/ [Concomitant]
     Indication: ASTHMA
     Dosage: 2 N/A, UNK
     Route: 055
  18. BIOTIN [Concomitant]
     Indication: NAIL GROWTH ABNORMAL
     Dosage: 1 N/A, QD
  19. BIOTIN [Concomitant]
     Indication: HAIR GROWTH ABNORMAL

REACTIONS (6)
  - Cough [Not Recovered/Not Resolved]
  - Nasal congestion [Not Recovered/Not Resolved]
  - Increased upper airway secretion [Not Recovered/Not Resolved]
  - Oropharyngeal pain [Not Recovered/Not Resolved]
  - Ageusia [Not Recovered/Not Resolved]
  - Anosmia [Not Recovered/Not Resolved]
